FAERS Safety Report 6674243-0 (Version None)
Quarter: 2010Q2

REPORT INFORMATION
  Report Type: 
  Country: None (occurrence: None)
  Receive Date: 20100409
  Receipt Date: 20100330
  Transmission Date: 20101027
  Serious: Yes (Hospitalization, Other)
  Sender: FDA-Public Use
  Company Number: KR-JNJFOC-20100400340

PATIENT
  Age: 43 Year
  Sex: Female

DRUGS (3)
  1. INFLIXIMAB [Suspect]
     Indication: CROHN'S DISEASE
     Route: 042
  2. SULFASALAZINE [Concomitant]
  3. CORTICOSTEROID [Concomitant]

REACTIONS (5)
  - ANAL CANCER [None]
  - ANAL FISTULA [None]
  - ANAL STENOSIS [None]
  - CROHN'S DISEASE [None]
  - FEMALE GENITAL TRACT FISTULA [None]
